FAERS Safety Report 14323723 (Version 1)
Quarter: 2017Q4

REPORT INFORMATION
  Report Type: Spontaneous
  Country: US (occurrence: US)
  Receive Date: 20171226
  Receipt Date: 20171226
  Transmission Date: 20180321
  Serious: No
  Sender: FDA-Public Use
  Company Number: US-ASTRAZENECA-2017SF23804

PATIENT
  Sex: Female

DRUGS (33)
  1. ZYLOPRIM [Concomitant]
     Active Substance: ALLOPURINOL
     Route: 048
  2. BUSPAR [Concomitant]
     Active Substance: BUSPIRONE HYDROCHLORIDE
     Route: 048
  3. VITAMIN D3 [Concomitant]
     Active Substance: CHOLECALCIFEROL
     Dosage: 1000 UNIT, ONE TABLET BY MOUTH ONE TIME A DAY.
     Route: 048
  4. PHOSLO [Concomitant]
     Active Substance: CALCIUM ACETATE
     Route: 048
  5. OXISTAT [Concomitant]
     Active Substance: OXICONAZOLE NITRATE
     Dosage: APPLY TOPICALLY TWO TIMWS A DAY
     Route: 061
  6. ZANAFLEX [Concomitant]
     Active Substance: TIZANIDINE HYDROCHLORIDE
     Route: 048
  7. ROSUVASTATIN. [Suspect]
     Active Substance: ROSUVASTATIN
     Route: 048
  8. NAPROSYN [Concomitant]
     Active Substance: NAPROXEN
     Dosage: TAKE ONE TABLET BY MOUTH TWO TIMES A DAY WITH MEALS.
     Route: 048
  9. ELIMITE [Concomitant]
     Active Substance: PERMETHRIN
     Dosage: APPLY 1 APPLICATION TOPICALLY ONCE.
     Route: 061
  10. POTASSIUM [Concomitant]
     Active Substance: POTASSIUM
     Route: 048
  11. COENZYME Q10 [Concomitant]
     Active Substance: UBIDECARENONE
     Route: 048
  12. LYRICA [Concomitant]
     Active Substance: PREGABALIN
     Route: 048
  13. THERAGRAN [Concomitant]
     Active Substance: VITAMINS
     Route: 048
  14. LISINOPRIL. [Suspect]
     Active Substance: LISINOPRIL
     Route: 048
  15. TENORMIN [Concomitant]
     Active Substance: ATENOLOL
     Route: 048
  16. FLONASE [Concomitant]
     Active Substance: FLUTICASONE PROPIONATE
     Dosage: 50 MCG/ACTUATION NASAL SPRAY, ONE SORAY BY EACH NARE ROUTE ONE TIME A DAY
  17. XYLOCAINE [Concomitant]
     Active Substance: LIDOCAINE HYDROCHLORIDE
     Dosage: APPLY 2 APPLICATION TOPICALLY ONE TIME A ADY
     Route: 061
  18. MYCOSTATIN [Concomitant]
     Active Substance: NYSTATIN
     Dosage: 100,000 UNIT/ML, TAKE FOUR TIMES A DAY
  19. ASPIRIN. [Concomitant]
     Active Substance: ASPIRIN
     Route: 048
  20. CARBOPLATIN. [Concomitant]
     Active Substance: CARBOPLATIN
     Dosage: INJECT INTO THE VEIN
     Route: 042
  21. PRAVACHOL [Concomitant]
     Active Substance: PRAVASTATIN SODIUM
     Route: 048
  22. RESTORIL [Concomitant]
     Active Substance: TEMAZEPAM
     Dosage: TAKE 30 MG BY MOUTH NIGHTLY AS NEEDED.
     Route: 048
  23. VITAMIN A [Concomitant]
     Active Substance: VITAMIN A
     Route: 048
  24. NEXIUM [Suspect]
     Active Substance: ESOMEPRAZOLE MAGNESIUM
     Route: 048
  25. HYGROTON [Concomitant]
     Active Substance: CHLORTHALIDONE
     Dosage: ONE TABLET BY MOUTH DAILY WITH BREAKFAST
     Route: 048
  26. DIFLUCAN [Concomitant]
     Active Substance: FLUCONAZOLE
  27. NORCO [Concomitant]
     Active Substance: ACETAMINOPHEN\HYDROCODONE BITARTRATE
     Indication: PAIN
     Dosage: ONE TABLET BY MOUTH EVERY HOURS AS NEEDED.
     Route: 048
  28. MECLIZINE [Concomitant]
     Active Substance: MECLIZINE HYDROCHLORIDE
  29. CALCIUM LACTATE [Concomitant]
     Active Substance: CALCIUM LACTATE
     Route: 048
  30. LOTRISONE [Concomitant]
     Active Substance: BETAMETHASONE DIPROPIONATE\CLOTRIMAZOLE
     Dosage: APPLY TOPICALLY TWO TIMES A DAY.
     Route: 061
  31. TAXOTERE [Concomitant]
     Active Substance: DOCETAXEL
     Dosage: INJECT INTO VEIN
     Route: 042
  32. ELAVIL [Suspect]
     Active Substance: AMITRIPTYLINE HYDROCHLORIDE
     Route: 065
  33. ULTRAM [Concomitant]
     Active Substance: TRAMADOL HYDROCHLORIDE
     Dosage: TAKE 50 MG BY MOUTH EVERY 8 HOURS AS NEEDED.
     Route: 048

REACTIONS (3)
  - Cough [Unknown]
  - Drug hypersensitivity [Unknown]
  - Pruritus [Unknown]
